FAERS Safety Report 5504537-3 (Version None)
Quarter: 2007Q4

REPORT INFORMATION
  Report Type: 
  Country: None (occurrence: None)
  Receive Date: 20071030
  Receipt Date: 20071019
  Transmission Date: 20080405
  Serious: Yes (Other)
  Sender: FDA-Public Use
  Company Number: 17145

PATIENT
  Age: 4 Year
  Sex: Male

DRUGS (4)
  1. CARBOPLATIN [Suspect]
     Indication: RETINOBLASTOMA UNILATERAL
  2. VINCRISTINE [Suspect]
     Indication: RETINOBLASTOMA UNILATERAL
  3. ETOPOSIDE [Suspect]
     Indication: RETINOBLASTOMA UNILATERAL
  4. CYCLOPHOSPHAMIDE [Suspect]
     Indication: RETINOBLASTOMA UNILATERAL

REACTIONS (1)
  - ACUTE MYELOID LEUKAEMIA [None]
